FAERS Safety Report 4608547-X (Version None)
Quarter: 2005Q1

REPORT INFORMATION
  Report Type: 
  Country: None (occurrence: None)
  Receive Date: 20050311
  Receipt Date: 20050311
  Transmission Date: 20050727
  Serious: Yes (Life-Threatening, Hospitalization)
  Sender: FDA-Public Use
  Company Number: None

PATIENT
  Sex: Male

DRUGS (2)
  1. ENOXAPARIN SODIUM [Suspect]
     Indication: THROMBOSIS PROPHYLAXIS
     Dosage: 30 MG Q72 HOURS  SUBDERMAL
     Route: 059
     Dates: start: 20050206, end: 20050209
  2. HEPARIN [Suspect]
     Indication: HAEMODIALYSIS
     Dosage: 5000 UNITS  DAILY INTRAVENOUS
     Route: 022
     Dates: start: 20040205, end: 20040209

REACTIONS (1)
  - POST PROCEDURAL HAEMORRHAGE [None]
